FAERS Safety Report 9148397 (Version 1)
Quarter: 2013Q1

REPORT INFORMATION
  Report Type: Spontaneous
  Country: US (occurrence: US)
  Receive Date: 20130308
  Receipt Date: 20130308
  Transmission Date: 20140127
  Serious: Yes (Death)
  Sender: FDA-Public Use
  Company Number: PHEH2013US005370

PATIENT
  Age: 84 Year
  Sex: Female
  Weight: 77 kg

DRUGS (31)
  1. RECLAST [Suspect]
     Indication: OSTEOPOROSIS
     Dosage: 5 MG/100 ML, YEARLY
     Route: 042
     Dates: start: 20100604
  2. RECLAST [Suspect]
     Dosage: 5 MG/100 ML, YEARLY
     Route: 042
     Dates: start: 20120619
  3. SINGULAIR [Concomitant]
     Dosage: 1 DF, DAILY
     Route: 048
  4. PRAVASTATIN [Concomitant]
     Dosage: 1 DF, DAILY
  5. DITROPAN [Concomitant]
     Dosage: 2 DF, DAILY
  6. ZANTAC [Concomitant]
     Dosage: UNK UKN, UNK
  7. ASPIRIN [Concomitant]
     Dosage: UNK UKN, UNK
  8. PREDNISONE [Concomitant]
     Dosage: 1 UKN, DAILY
  9. MULTIVITAMINS [Concomitant]
     Dosage: UNK UKN, UNK
  10. NORVASC [Concomitant]
     Dosage: 1 DF, DAILY
     Route: 048
  11. FOLIC ACID [Concomitant]
     Dosage: 1 DF, DAILY
     Route: 048
  12. LASIX [Concomitant]
     Dosage: UNK UKN, UNK
  13. VENTOLIN HFA [Concomitant]
     Dosage: UNK UKN, UNK
  14. PLAQUENIL [Concomitant]
     Dosage: UNK UKN, UNK
     Dates: start: 201012
  15. LISINOPRIL [Concomitant]
     Dosage: 1 DF, DAILY
     Route: 048
  16. JANUVIA [Concomitant]
     Dosage: UNK UKN, DAILY
  17. ALBUTEROL [Concomitant]
     Dosage: UNK UKN, UNK
  18. KLOR-CON [Concomitant]
     Dosage: 1 DF, DAILY
     Route: 048
  19. IRON [Concomitant]
     Dosage: 1 OR 2 DF, EVERY DAY
     Route: 048
  20. LEVOTHYROXINE [Concomitant]
     Dosage: 1 DF, DAILY
     Route: 048
  21. AMITRIPTYLINE [Concomitant]
     Dosage: 1 DF, EVERY EVENING
     Route: 048
  22. OXYGEN [Concomitant]
     Dosage: 2 L, PER MINUTE 24 HOURS A DAY
  23. ALBUTEROL SULFATE [Concomitant]
     Indication: ASTHMA
     Dosage: 1 DF, 3 TIMES A DAY
  24. ALBUTEROL SULFATE [Concomitant]
     Indication: COUGH
  25. ALBUTEROL SULFATE [Concomitant]
     Indication: CHRONIC RESPIRATORY FAILURE
  26. SMZ-TMP [Concomitant]
     Dosage: 1 DF, BID
     Route: 048
  27. RANITIDINE [Concomitant]
     Dosage: 1 DF, DAILY
     Route: 048
  28. FUROSEMIDE [Concomitant]
     Dosage: 1 DF, BID (MORNING AND NOON)
     Route: 048
  29. HYDROCODONE [Concomitant]
     Dosage: UNK UKN, PRN
  30. NORCO [Concomitant]
     Indication: PAIN
     Dosage: 1 DF, EVERY 6 HOURS
     Route: 048
  31. HYDROXYCHLOROQUINE [Concomitant]
     Dosage: UNK UKN, UNK

REACTIONS (12)
  - Acute myocardial infarction [Fatal]
  - Chest pain [Fatal]
  - Blood creatine phosphokinase MB increased [Fatal]
  - Cardio-respiratory arrest [Fatal]
  - Pulse absent [Fatal]
  - Blood sodium decreased [Unknown]
  - Red blood cell sedimentation rate increased [Unknown]
  - Rheumatoid nodule [Unknown]
  - Musculoskeletal pain [Unknown]
  - Pain in extremity [Unknown]
  - Arthralgia [Unknown]
  - Oedema peripheral [Unknown]
